FAERS Safety Report 6121096-5 (Version None)
Quarter: 2009Q1

REPORT INFORMATION
  Report Type: 
  Country: None (occurrence: None)
  Receive Date: 20090312
  Receipt Date: 20090312
  Transmission Date: 20090719
  Serious: No
  Sender: FDA-Public Use
  Company Number: None

PATIENT
  Age: 80 Year
  Sex: Male
  Weight: 80.7 kg

DRUGS (1)
  1. VIDAZA [Suspect]
     Indication: MYELODYSPLASTIC SYNDROME
     Dosage: 150 MG DAILY FOR 5 DAYS IV
     Route: 042
     Dates: start: 20090310, end: 20090310

REACTIONS (1)
  - INJECTION SITE STREAKING [None]
